FAERS Safety Report 7244179-5 (Version None)
Quarter: 2011Q1

REPORT INFORMATION
  Report Type: 
  Country: None (occurrence: None)
  Receive Date: 20110125
  Receipt Date: 20110114
  Transmission Date: 20110831
  Serious: Yes (Hospitalization)
  Sender: FDA-Public Use
  Company Number: AU-BAXTER-2011BH001515

PATIENT
  Sex: Male

DRUGS (3)
  1. DEXTROSE [Suspect]
     Indication: CHEMOTHERAPY
     Route: 042
  2. SODIUM CHLORIDE 0.9% IN PLASTIC CONTAINER [Suspect]
     Indication: CHEMOTHERAPY
     Route: 042
  3. CARBOPLATIN [Suspect]
     Indication: CHEMOTHERAPY
     Route: 042

REACTIONS (1)
  - HYPERSENSITIVITY [None]
